FAERS Safety Report 10010344 (Version 2)
Quarter: 2014Q2

REPORT INFORMATION
  Report Type: Report from Study
  Country: FR (occurrence: FR)
  Receive Date: 20140314
  Receipt Date: 20140408
  Transmission Date: 20141212
  Serious: Yes (Hospitalization)
  Sender: FDA-Public Use
  Company Number: FR-ROCHE-1360804

PATIENT
  Age: 25 Year
  Sex: Female
  Weight: 85 kg

DRUGS (9)
  1. RITUXIMAB [Suspect]
     Indication: DIFFUSE LARGE B-CELL LYMPHOMA
     Dosage: LAST DOSE PRIOR TO SAE WAS GIVEN ON 28 NOV 2013
     Route: 042
     Dates: start: 20130711
  2. DOXORUBICIN [Suspect]
     Indication: DIFFUSE LARGE B-CELL LYMPHOMA
     Route: 065
     Dates: start: 20130711, end: 20130821
  3. CYCLOPHOSPHAMIDE [Suspect]
     Indication: DIFFUSE LARGE B-CELL LYMPHOMA
     Route: 065
     Dates: start: 20130711, end: 20130821
  4. VINDESINE [Suspect]
     Indication: DIFFUSE LARGE B-CELL LYMPHOMA
     Route: 065
     Dates: start: 20130711, end: 20130821
  5. BLEOMYCIN [Suspect]
     Indication: DIFFUSE LARGE B-CELL LYMPHOMA
     Route: 065
     Dates: start: 20130711, end: 20130821
  6. PREDNISOLONE [Suspect]
     Indication: DIFFUSE LARGE B-CELL LYMPHOMA
     Route: 065
     Dates: start: 20130711, end: 20130821
  7. VALACICLOVIR [Concomitant]
     Route: 065
     Dates: start: 20130711
  8. NOMEGESTROL ACETATE [Concomitant]
     Route: 065
     Dates: start: 20130909
  9. SULFAMETHOXAZOLE/TRIMETHOPRIM [Concomitant]
     Route: 065
     Dates: start: 20130711

REACTIONS (1)
  - Gastric ulcer [Recovered/Resolved]
